FAERS Safety Report 4268703-X (Version None)
Quarter: 2004Q1

REPORT INFORMATION
  Report Type: 
  Country: None (occurrence: None)
  Receive Date: 20040108
  Receipt Date: 20031229
  Transmission Date: 20041129
  Serious: Yes (Hospitalization)
  Sender: FDA-Public Use
  Company Number: ZONI001232

PATIENT
  Age: 23 Year
  Sex: Male

DRUGS (1)
  1. ZONEGRAN [Suspect]
     Indication: EPILEPSY
     Dates: start: 20030601, end: 20030901

REACTIONS (12)
  - AGITATION [None]
  - ALCOHOL USE [None]
  - DECREASED APPETITE [None]
  - DELUSIONAL DISORDER, PERSECUTORY TYPE [None]
  - DRUG DEPENDENCE [None]
  - HALLUCINATION, AUDITORY [None]
  - HYPOMANIA [None]
  - IDEAS OF REFERENCE [None]
  - INSOMNIA [None]
  - MANIA [None]
  - PSYCHOTIC DISORDER [None]
  - SOMNOLENCE [None]
